FAERS Safety Report 5157253-4 (Version None)
Quarter: 2006Q4

REPORT INFORMATION
  Report Type: 
  Country: None (occurrence: None)
  Receive Date: 20061115
  Receipt Date: 20061110
  Transmission Date: 20070319
  Serious: Yes (Death, Life-Threatening, Hospitalization)
  Sender: FDA-Public Use
  Company Number: CLOF-10375

PATIENT
  Age: 16 Year
  Sex: Male

DRUGS (1)
  1. CLOLAR [Suspect]
     Indication: DRUG USE FOR UNKNOWN INDICATION
     Dosage: 52 MG/M2 QD X 5 IV
     Route: 042
     Dates: start: 20060301, end: 20060401

REACTIONS (5)
  - BRONCHOPULMONARY ASPERGILLOSIS [None]
  - INFECTION IN AN IMMUNOCOMPROMISED HOST [None]
  - PAIN IN EXTREMITY [None]
  - PARAESTHESIA [None]
  - PULMONARY HAEMORRHAGE [None]
